FAERS Safety Report 19628377 (Version 9)
Quarter: 2025Q2

REPORT INFORMATION
  Report Type: Spontaneous
  Country: GB (occurrence: GB)
  Receive Date: 20210729
  Receipt Date: 20250630
  Transmission Date: 20250717
  Serious: Yes (Other)
  Sender: MYLAN
  Company Number: GB-MYLANLABS-2021M1045622

PATIENT
  Age: 46 Year
  Sex: Male

DRUGS (3)
  1. CLOZARIL [Suspect]
     Active Substance: CLOZAPINE
     Indication: Schizophrenia
     Dates: start: 20160412, end: 20210722
  2. CLOZARIL [Suspect]
     Active Substance: CLOZAPINE
  3. QUETIAPINE [Concomitant]
     Active Substance: QUETIAPINE

REACTIONS (8)
  - Leukopenia [Recovered/Resolved]
  - Neutropenia [Recovered/Resolved]
  - Leukocytosis [Unknown]
  - Dizziness [Unknown]
  - Anxiety [Unknown]
  - Eosinophil count decreased [Not Recovered/Not Resolved]
  - General physical condition abnormal [Unknown]
  - Neutrophilia [Unknown]

NARRATIVE: CASE EVENT DATE: 20210722
